FAERS Safety Report 8596372 (Version 3)
Quarter: 2012Q4

REPORT INFORMATION
  Report Type: 
  Country: CO (occurrence: CO)
  Receive Date: 20120605
  Receipt Date: 20120906
  Transmission Date: 20130627
  Serious: Yes (Death)
  Sender: FDA-Public Use
  Company Number: PHHY2012CO047318

PATIENT
  Age: 53 None
  Sex: Male

DRUGS (4)
  1. SANDOSTATIN LAR [Suspect]
     Indication: NEUROENDOCRINE TUMOUR
     Dosage: 20 mg, UNK
     Route: 030
     Dates: end: 201110
  2. CHEMOTHERAPEUTICS [Concomitant]
  3. ACETAMINOPHEN [Concomitant]
  4. TRAMADOL [Concomitant]

REACTIONS (1)
  - Respiratory arrest [Fatal]
